FAERS Safety Report 17604908 (Version 1)
Quarter: 2020Q1

REPORT INFORMATION
  Report Type: Spontaneous
  Country: US (occurrence: US)
  Receive Date: 20200331
  Receipt Date: 20200331
  Transmission Date: 20200409
  Serious: Yes (Disabling, Other)
  Sender: FDA-Public Use
  Company Number: US-BRISTOL-MYERS SQUIBB COMPANY-BMS-2020-025523

PATIENT
  Sex: Male

DRUGS (1)
  1. ELIQUIS [Suspect]
     Active Substance: APIXABAN
     Indication: EMBOLISM VENOUS
     Dosage: 5 MILLIGRAM, BID
     Route: 048
     Dates: start: 202001

REACTIONS (3)
  - Ulcer haemorrhage [Unknown]
  - Rash pruritic [Unknown]
  - Thrombosis [Unknown]

NARRATIVE: CASE EVENT DATE: 2020
